FAERS Safety Report 20652057 (Version 3)
Quarter: 2022Q2

REPORT INFORMATION
  Report Type: Report from Study
  Country: US (occurrence: US)
  Receive Date: 20220330
  Receipt Date: 20220607
  Transmission Date: 20220721
  Serious: No
  Sender: FDA-Public Use
  Company Number: US-NOVARTISTESTPH-NVSC2022US071518

PATIENT
  Sex: Female

DRUGS (2)
  1. TABRECTA [Suspect]
     Active Substance: CAPMATINIB
     Indication: Non-small cell lung cancer
     Dosage: UNK
     Route: 065
  2. TABRECTA [Suspect]
     Active Substance: CAPMATINIB
     Dosage: 1 DOSAGE FORM (RESTARTED ON DRUG TODAY ON A LOWER DOSE), QD
     Route: 065

REACTIONS (3)
  - Nonspecific reaction [Unknown]
  - Rash pruritic [Unknown]
  - Joint swelling [Unknown]
